FAERS Safety Report 4436888-8 (Version None)
Quarter: 2004Q3

REPORT INFORMATION
  Report Type: 
  Country: None (occurrence: None)
  Receive Date: 20040830
  Receipt Date: 20040819
  Transmission Date: 20050211
  Serious: Yes (Other)
  Sender: FDA-Public Use
  Company Number: US-BRISTOL-MYERS SQUIBB COMPANY-12676250

PATIENT
  Age: 50 Year
  Sex: Female

DRUGS (1)
  1. SERZONE [Suspect]

REACTIONS (3)
  - CHOLECYSTECTOMY [None]
  - FEELING ABNORMAL [None]
  - HEPATIC FUNCTION ABNORMAL [None]
